FAERS Safety Report 15100291 (Version 1)
Quarter: 2018Q3

REPORT INFORMATION
  Report Type: Spontaneous
  Country: FR (occurrence: FR)
  Receive Date: 20180703
  Receipt Date: 20180703
  Transmission Date: 20181010
  Serious: Yes (Death)
  Sender: FDA-Public Use
  Company Number: FR-ROCHE-2147525

PATIENT
  Sex: Female

DRUGS (1)
  1. RITUXIMAB. [Suspect]
     Active Substance: RITUXIMAB
     Indication: CONNECTIVE TISSUE DISORDER
     Route: 041
     Dates: start: 20100209, end: 20121127

REACTIONS (3)
  - Lung disorder [Fatal]
  - Osteitis [Fatal]
  - Dry gangrene [Fatal]

NARRATIVE: CASE EVENT DATE: 20130505
